FAERS Safety Report 16398483 (Version 1)
Quarter: 2019Q2

REPORT INFORMATION
  Report Type: Spontaneous
  Country: GB (occurrence: GB)
  Receive Date: 20190606
  Receipt Date: 20190606
  Transmission Date: 20190711
  Serious: Yes (Hospitalization)
  Sender: FDA-Public Use
  Company Number: GB-EISAI MEDICAL RESEARCH-EC-2019-057100

PATIENT
  Age: 97 Year
  Sex: Female
  Weight: 64 kg

DRUGS (5)
  1. SIMVASTATIN. [Concomitant]
     Active Substance: SIMVASTATIN
     Dosage: DOSE AND FREQUENCY UNKNOWN
     Route: 065
  2. ADCAL-D3 [Concomitant]
     Active Substance: CALCIUM CARBONATE\CHOLECALCIFEROL
     Dosage: DOSE AND FREQUENCY UNKNOWN
     Route: 065
  3. APIXABAN [Concomitant]
     Active Substance: APIXABAN
     Dosage: DOSE AND FREQUENCY UNKNOWN
     Route: 065
  4. DONEPEZIL. [Suspect]
     Active Substance: DONEPEZIL
     Indication: DEMENTIA
     Route: 048
     Dates: end: 20190407
  5. FELODIPINE. [Concomitant]
     Active Substance: FELODIPINE
     Dosage: DOSE AND FREQUENCY UNKNOWN
     Route: 065

REACTIONS (2)
  - Bradycardia [Recovering/Resolving]
  - Syncope [Unknown]

NARRATIVE: CASE EVENT DATE: 20190405
